FAERS Safety Report 17561866 (Version 1)
Quarter: 2020Q1

REPORT INFORMATION
  Report Type: Spontaneous
  Country: US (occurrence: US)
  Receive Date: 20200319
  Receipt Date: 20200319
  Transmission Date: 20200409
  Serious: No
  Sender: FDA-Public Use
  Company Number: None

PATIENT
  Age: 53 Year
  Sex: Female
  Weight: 63 kg

DRUGS (1)
  1. BUPRENORPHINE  PATCH [Suspect]
     Active Substance: BUPRENORPHINE
     Indication: PAIN
     Dosage: ?          QUANTITY:4 PATCH(ES);OTHER FREQUENCY:CHANGE EVERY 7 DAY;?
     Route: 062

REACTIONS (7)
  - Skin discolouration [None]
  - Pruritus [None]
  - Product substitution issue [None]
  - Product adhesion issue [None]
  - Product use complaint [None]
  - Therapeutic response decreased [None]
  - Rash [None]

NARRATIVE: CASE EVENT DATE: 20190221
